FAERS Safety Report 24629231 (Version 2)
Quarter: 2024Q4

REPORT INFORMATION
  Report Type: Spontaneous
  Country: CA (occurrence: CA)
  Receive Date: 20241118
  Receipt Date: 20241211
  Transmission Date: 20250115
  Serious: Yes (Hospitalization, Other)
  Sender: Haleon PLC
  Company Number: CA-SANDOZ-SDZ2024CA064799

PATIENT
  Age: 17 Year
  Sex: Female

DRUGS (32)
  1. DICLOFENAC SODIUM [Suspect]
     Active Substance: DICLOFENAC SODIUM
     Indication: Injection site pain
     Route: 065
  2. DULOXETINE [Suspect]
     Active Substance: DULOXETINE
     Indication: Injection site pain
     Route: 065
  3. HYDROXYCHLOROQUINE [Suspect]
     Active Substance: HYDROXYCHLOROQUINE
     Indication: Type III immune complex mediated reaction
     Route: 065
  4. INSULIN GLULISINE [Concomitant]
     Active Substance: INSULIN GLULISINE
     Indication: Type 1 diabetes mellitus
     Route: 058
  5. METHOTREXATE [Concomitant]
     Active Substance: METHOTREXATE
     Indication: Product used for unknown indication
     Route: 065
  6. COLCHICINE [Concomitant]
     Active Substance: COLCHICINE
     Indication: Type III immune complex mediated reaction
     Route: 065
  7. PREGABALIN [Suspect]
     Active Substance: PREGABALIN
     Indication: Injection site pain
     Dosage: 25 MG, 2/DAYS
     Route: 048
  8. PREGABALIN [Suspect]
     Active Substance: PREGABALIN
     Indication: Product used for unknown indication
     Route: 048
  9. PREGABALIN [Suspect]
     Active Substance: PREGABALIN
     Route: 065
  10. PREGABALIN [Suspect]
     Active Substance: PREGABALIN
     Dosage: 25 MG, BID
     Route: 048
  11. PREGABALIN [Suspect]
     Active Substance: PREGABALIN
     Route: 048
  12. DICLOFENAC DIETHYLAMINE [Suspect]
     Active Substance: DICLOFENAC DIETHYLAMINE
     Indication: Injection site pain
     Route: 061
  13. DICLOFENAC DIETHYLAMINE [Suspect]
     Active Substance: DICLOFENAC DIETHYLAMINE
     Dosage: CUTANEOUS FOAM 3%
     Route: 061
  14. TACROLIMUS [Concomitant]
     Active Substance: TACROLIMUS
     Indication: Product used for unknown indication
     Route: 065
  15. TACROLIMUS [Suspect]
     Active Substance: TACROLIMUS
     Indication: Type III immune complex mediated reaction
     Route: 065
  16. INSULIN LISPRO [Concomitant]
     Active Substance: INSULIN LISPRO
     Indication: Type 1 diabetes mellitus
     Route: 058
  17. EMLA [Suspect]
     Active Substance: LIDOCAINE\PRILOCAINE
     Indication: Injection site pain
     Route: 065
  18. EMLA [Suspect]
     Active Substance: LIDOCAINE\PRILOCAINE
     Route: 061
  19. INSULIN DEGLUDEC [Concomitant]
     Active Substance: INSULIN DEGLUDEC
     Indication: Type 1 diabetes mellitus
     Route: 058
  20. COLCHICINE [Suspect]
     Active Substance: COLCHICINE
     Indication: Type III immune complex mediated reaction
     Route: 065
  21. INSULIN GLARGINE [Concomitant]
     Active Substance: INSULIN GLARGINE
     Indication: Type 1 diabetes mellitus
     Dosage: DOSE FORM: SOLUTION SUBCUTANEOUS
     Route: 058
  22. METHOTREXATE SODIUM [Suspect]
     Active Substance: METHOTREXATE SODIUM
     Indication: Type III immune complex mediated reaction
     Route: 065
  23. INSULIN ASPART [Concomitant]
     Active Substance: INSULIN ASPART
     Indication: Type 1 diabetes mellitus
     Route: 058
  24. TACROLIMUS [Concomitant]
     Active Substance: TACROLIMUS
     Indication: Product used for unknown indication
     Route: 065
  25. KETAMINE [Suspect]
     Active Substance: KETAMINE
     Indication: Injection site pain
     Route: 061
  26. NAPROXEN [Suspect]
     Active Substance: NAPROXEN
     Indication: Injection site pain
     Route: 065
  27. INSULIN NOS [Concomitant]
     Active Substance: INSULIN NOS
     Indication: Product used for unknown indication
     Route: 065
  28. METHOTREXATE [Suspect]
     Active Substance: METHOTREXATE
     Indication: Type III immune complex mediated reaction
     Route: 065
  29. HYDROXYCHLOROQUINE [Concomitant]
     Active Substance: HYDROXYCHLOROQUINE
     Indication: Type III immune complex mediated reaction
     Route: 065
  30. LIDOCAINE [Suspect]
     Active Substance: LIDOCAINE
     Indication: Injection site pain
     Route: 061
  31. INSULIN HUMAN [Suspect]
     Active Substance: INSULIN HUMAN
     Indication: Type 1 diabetes mellitus
     Route: 033
  32. DICLOFENAC SODIUM [Suspect]
     Active Substance: DICLOFENAC SODIUM
     Indication: Injection site pain
     Route: 065

REACTIONS (6)
  - Medical device site abscess [Unknown]
  - Medical device site cellulitis [Unknown]
  - Drug ineffective for unapproved indication [Unknown]
  - Therapy partial responder [Unknown]
  - Off label use [Unknown]
  - Drug ineffective [Unknown]
